FAERS Safety Report 15543241 (Version 1)
Quarter: 2018Q4

REPORT INFORMATION
  Report Type: Spontaneous
  Country: US (occurrence: US)
  Receive Date: 20181023
  Receipt Date: 20181023
  Transmission Date: 20190205
  Serious: Yes (Other)
  Sender: FDA-Public Use
  Company Number: PHHY2018US128417

PATIENT
  Age: 8 Month
  Sex: Male

DRUGS (2)
  1. RANITIDINE. [Concomitant]
     Active Substance: RANITIDINE
     Indication: PROPHYLAXIS
     Dosage: 30 MG, UNK
     Route: 065
  2. DEXAMETHASONE. [Suspect]
     Active Substance: DEXAMETHASONE
     Indication: PROPHYLAXIS
     Dosage: 1.6 MG/KG, QD
     Route: 042

REACTIONS (3)
  - Peptic ulcer [Recovering/Resolving]
  - Condition aggravated [Recovering/Resolving]
  - Haematocrit decreased [Recovered/Resolved]
